FAERS Safety Report 9709452 (Version 1)
Quarter: 2013Q4

REPORT INFORMATION
  Report Type: Spontaneous
  Country: US (occurrence: US)
  Receive Date: 20131126
  Receipt Date: 20131126
  Transmission Date: 20140711
  Serious: Yes (Hospitalization, Other)
  Sender: FDA-Public Use
  Company Number: US-ROXANE LABORATORIES, INC.-2013-RO-01865RO

PATIENT
  Age: 84 Year
  Sex: Male

DRUGS (6)
  1. FUROSEMIDE [Suspect]
     Indication: CARDIAC FAILURE CONGESTIVE
     Route: 048
  2. RAMIPRIL [Suspect]
  3. SIMVASTATIN [Suspect]
  4. POTASSIUM CHLORIDE [Suspect]
  5. CHLORTHALIDONE [Suspect]
  6. MULTIVITAMIN [Suspect]

REACTIONS (4)
  - Thrombocytopenia [Recovered/Resolved]
  - Urinary tract infection [Unknown]
  - Pyelonephritis [Recovered/Resolved]
  - Cardiac failure [Recovered/Resolved]
